FAERS Safety Report 11895806 (Version 1)
Quarter: 2016Q1

REPORT INFORMATION
  Report Type: Spontaneous
  Country: US (occurrence: None)
  Receive Date: 20160106
  Receipt Date: 20160106
  Transmission Date: 20160526
  Serious: No
  Sender: FDA-Public Use
  Company Number: None

PATIENT

DRUGS (3)
  1. CLEVIPREX [Suspect]
     Active Substance: CLEVIDIPINE
     Dosage: INJECTABLE, INTRAVENOUS USE ONLY, VIAL
     Route: 042
  2. CLEVIPREX [Suspect]
     Active Substance: CLEVIDIPINE
     Dosage: INJECTABLE, INTRAVENOUS USE ONLY
     Route: 042
  3. DIPRIVAN [Suspect]
     Active Substance: PROPOFOL
     Dosage: 1000 MG PER 100 ML?INJECTABLE, INJECTION, 100 ML

REACTIONS (4)
  - Product packaging confusion [None]
  - Product colour issue [None]
  - Product label confusion [None]
  - Drug dispensing error [None]
